FAERS Safety Report 19862264 (Version 1)
Quarter: 2021Q3

REPORT INFORMATION
  Report Type: Spontaneous
  Country: US (occurrence: US)
  Receive Date: 20210921
  Receipt Date: 20210921
  Transmission Date: 20211014
  Serious: No
  Sender: FDA-Public Use
  Company Number: US-GLENMARK PHARMACEUTICALS-2021GMK066967

PATIENT

DRUGS (2)
  1. ESTRADIOL. [Concomitant]
     Active Substance: ESTRADIOL
     Indication: MIGRAINE
     Dosage: UNK
     Route: 065
  2. TOPIRAMATE TABLETS 25MG [Suspect]
     Active Substance: TOPIRAMATE
     Indication: MIGRAINE PROPHYLAXIS
     Dosage: 3 DOSAGE FORM, BID (THREE TABLETS IN THE MORNING AND THREE TABLETS AT NIGHT)
     Route: 048
     Dates: start: 20210402

REACTIONS (1)
  - Vertigo [Not Recovered/Not Resolved]

NARRATIVE: CASE EVENT DATE: 20210718
